FAERS Safety Report 15410643 (Version 1)
Quarter: 2018Q3

REPORT INFORMATION
  Report Type: Spontaneous
  Country: DE (occurrence: DE)
  Receive Date: 20180921
  Receipt Date: 20180921
  Transmission Date: 20181010
  Serious: Yes (Hospitalization)
  Sender: FDA-Public Use
  Company Number: DE-AMGEN-DEUSP2018107029

PATIENT
  Age: 59 Year
  Sex: Female

DRUGS (5)
  1. IBU [Concomitant]
     Active Substance: IBUPROFEN
     Dosage: UNK UNK, AS NEEDED
  2. JODID [Concomitant]
     Active Substance: IODINE
     Dosage: 1 DF, 1X/DAY, FOR MORE THAN 6  YEARS
  3. ENBREL [Suspect]
     Active Substance: ETANERCEPT
     Indication: RHEUMATOID ARTHRITIS
     Dosage: UNK (FOR 6 YEARS)
     Route: 065
  4. ENBREL [Suspect]
     Active Substance: ETANERCEPT
     Dosage: 50 MG, QWK
     Route: 065
     Dates: start: 2012, end: 20180718
  5. VITAGAMMA [Concomitant]
     Dosage: 1000 IU, 2X/DAY
     Dates: start: 2012

REACTIONS (6)
  - Red blood cell analysis abnormal [Recovered/Resolved]
  - Blood test abnormal [Unknown]
  - Impaired healing [Unknown]
  - Sepsis [Recovered/Resolved]
  - White blood cell analysis abnormal [Recovered/Resolved]
  - Blood test abnormal [Recovered/Resolved]

NARRATIVE: CASE EVENT DATE: 2012
